FAERS Safety Report 9338271 (Version 3)
Quarter: 2013Q4

REPORT INFORMATION
  Report Type: Spontaneous
  Country: FR (occurrence: FR)
  Receive Date: 20130610
  Receipt Date: 20131016
  Transmission Date: 20140711
  Serious: Yes (Hospitalization)
  Sender: FDA-Public Use
  Company Number: FR-ASTRAZENECA-2013SE40319

PATIENT
  Age: 19396 Day
  Sex: Female

DRUGS (4)
  1. TENORMINE [Suspect]
     Route: 048
     Dates: start: 20130130
  2. THYROZOL [Suspect]
     Indication: BASEDOW^S DISEASE
     Route: 065
     Dates: start: 20130208, end: 20130307
  3. SERESTA [Concomitant]
  4. MEDIATOR [Concomitant]
     Indication: WEIGHT DECREASED
     Dates: end: 2008

REACTIONS (3)
  - Granulomatous liver disease [Recovered/Resolved]
  - Cholestasis [Recovered/Resolved]
  - Pruritus [Not Recovered/Not Resolved]
